FAERS Safety Report 6113291-6 (Version None)
Quarter: 2009Q1

REPORT INFORMATION
  Report Type: 
  Country: None (occurrence: None)
  Receive Date: 20090312
  Receipt Date: 20060623
  Transmission Date: 20090719
  Serious: No
  Sender: FDA-Public Use
  Company Number: US-ABBOTT-08P-163-0456377-00

PATIENT

DRUGS (5)
  1. DEPAKOTE [Suspect]
     Indication: DRUG USE FOR UNKNOWN INDICATION
     Dosage: DOSE DECREASED BY HALF
  2. CLONAZEPAM [Concomitant]
     Indication: DRUG USE FOR UNKNOWN INDICATION
  3. BACLOFEN [Concomitant]
     Indication: DRUG USE FOR UNKNOWN INDICATION
  4. QUETIAPINE FUMARATE [Concomitant]
     Indication: DRUG USE FOR UNKNOWN INDICATION
  5. AMLODIPINE [Concomitant]
     Indication: DRUG USE FOR UNKNOWN INDICATION
     Dosage: NEWLY ADDED TO REGIMEN

REACTIONS (2)
  - DRUG LEVEL INCREASED [None]
  - SEDATION [None]
